FAERS Safety Report 14867722 (Version 3)
Quarter: 2018Q3

REPORT INFORMATION
  Report Type: Report from Study
  Country: US (occurrence: US)
  Receive Date: 20180509
  Receipt Date: 20180713
  Transmission Date: 20181010
  Serious: Yes (Hospitalization)
  Sender: FDA-Public Use
  Company Number: US-ROCHE-2118069

PATIENT
  Age: 68 Year
  Sex: Female
  Weight: 68.1 kg

DRUGS (5)
  1. OCREVUS [Suspect]
     Active Substance: OCRELIZUMAB
     Indication: PRIMARY PROGRESSIVE MULTIPLE SCLEROSIS
     Route: 042
     Dates: start: 201707
  2. OCREVUS [Interacting]
     Active Substance: OCRELIZUMAB
     Route: 042
     Dates: start: 20180206
  3. AMOXICILLIN. [Interacting]
     Active Substance: AMOXICILLIN
     Indication: SINUSITIS
     Dosage: 1 TAB TWICE A DAY X 10 DAYS ;ONGOING: NO
     Route: 065
     Dates: start: 20180117
  4. OCREVUS [Interacting]
     Active Substance: OCRELIZUMAB
     Route: 042
     Dates: start: 20180226
  5. KEFLEX [Concomitant]
     Active Substance: CEPHALEXIN
     Indication: URINARY TRACT INFECTION
     Dosage: YES
     Route: 065
     Dates: start: 2015

REACTIONS (3)
  - Drug interaction [Unknown]
  - Sinusitis [Recovered/Resolved]
  - Multiple sclerosis relapse [Not Recovered/Not Resolved]

NARRATIVE: CASE EVENT DATE: 20180117
